FAERS Safety Report 7587359-1 (Version None)
Quarter: 2011Q3

REPORT INFORMATION
  Report Type: 
  Country: None (occurrence: None)
  Receive Date: 20110701
  Receipt Date: 20110623
  Transmission Date: 20111222
  Serious: Yes (Hospitalization)
  Sender: FDA-Public Use
  Company Number: US-AMGEN-USASP2011032223

PATIENT
  Age: 85 Year
  Sex: Male

DRUGS (5)
  1. CENTRUM SILVER                     /01292501/ [Concomitant]
  2. LASIX [Concomitant]
  3. LANDROLEN [Concomitant]
  4. XGEVA [Suspect]
     Indication: METASTASES TO BONE
     Dosage: 120 MG, Q4WK
     Dates: start: 20110615
  5. LEUPROLIDE ACETATE [Concomitant]

REACTIONS (1)
  - RHABDOMYOLYSIS [None]
